FAERS Safety Report 23458399 (Version 1)
Quarter: 2024Q1

REPORT INFORMATION
  Report Type: Spontaneous
  Country: IT (occurrence: IT)
  Receive Date: 20240130
  Receipt Date: 20240130
  Transmission Date: 20240410
  Serious: Yes (Death)
  Sender: FDA-Public Use
  Company Number: IT-BAUSCH-BL-2024-001257

PATIENT
  Age: 78 Year
  Sex: Female
  Weight: 67 kg

DRUGS (1)
  1. RIFAXIMIN [Suspect]
     Active Substance: RIFAXIMIN
     Indication: Diverticulitis
     Route: 048
     Dates: start: 20070701, end: 20171215

REACTIONS (1)
  - Myelodysplastic syndrome with excess blasts [Fatal]

NARRATIVE: CASE EVENT DATE: 20180423
